FAERS Safety Report 8166701-7 (Version None)
Quarter: 2012Q1

REPORT INFORMATION
  Report Type: 
  Country: None (occurrence: None)
  Receive Date: 20120227
  Receipt Date: 20120220
  Transmission Date: 20120608
  Serious: Yes (Other)
  Sender: FDA-Public Use
  Company Number: GB-ROCHE-1042115

PATIENT
  Sex: Female

DRUGS (2)
  1. CHEMOTHERAPY (UNK INGREDIENTS) [Concomitant]
  2. AVASTIN [Suspect]
     Indication: PRODUCT USED FOR UNKNOWN INDICATION

REACTIONS (1)
  - METASTASES TO CENTRAL NERVOUS SYSTEM [None]
